FAERS Safety Report 13329805 (Version 2)
Quarter: 2017Q1

REPORT INFORMATION
  Report Type: Report from Study
  Country: US (occurrence: US)
  Receive Date: 20170313
  Receipt Date: 20170328
  Transmission Date: 20170428
  Serious: Yes (Other)
  Sender: FDA-Public Use
  Company Number: US-AEGERION PHARMACEUTICAL, INC-AEGR001617

PATIENT
  Age: 13 Year
  Sex: Female

DRUGS (9)
  1. METRELEPTIN [Suspect]
     Active Substance: METRELEPTIN
     Dosage: 5 MG, Q12H
     Route: 058
     Dates: end: 20121221
  2. CHOLECALCIFEROL [Concomitant]
     Active Substance: CHOLECALCIFEROL
     Dosage: 1000 IU, QD
     Route: 048
  3. ENALAPRIL [Concomitant]
     Active Substance: ENALAPRIL
     Indication: PROPHYLAXIS
     Dosage: 5 MG, QD
     Route: 048
     Dates: start: 20120223
  4. FENOFIBRATE. [Concomitant]
     Active Substance: FENOFIBRATE
     Indication: HYPERTRIGLYCERIDAEMIA
     Dosage: 145 MG, QD
     Route: 048
     Dates: start: 20130402
  5. METRELEPTIN [Suspect]
     Active Substance: METRELEPTIN
     Dosage: UNK
     Route: 058
     Dates: start: 20130223
  6. METRELEPTIN [Suspect]
     Active Substance: METRELEPTIN
     Indication: LIPODYSTROPHY ACQUIRED
     Dosage: 2.8 MG, QD
     Route: 058
     Dates: start: 20110222
  7. METFORMIN [Concomitant]
     Active Substance: METFORMIN HYDROCHLORIDE
     Dosage: 2 G, QD
     Route: 048
     Dates: start: 20120611
  8. METFORMIN [Concomitant]
     Active Substance: METFORMIN HYDROCHLORIDE
     Indication: INSULIN RESISTANCE
     Dosage: 750 MG, BID
     Route: 048
     Dates: start: 20090421, end: 20120611
  9. INSULIN [Concomitant]
     Active Substance: INSULIN NOS
     Indication: HYPERGLYCAEMIA
     Dosage: 200 UNITS, QD
     Route: 058
     Dates: start: 20161212

REACTIONS (3)
  - Neutralising antibodies positive [Unknown]
  - Condition aggravated [Unknown]
  - Therapy cessation [Recovered/Resolved]

NARRATIVE: CASE EVENT DATE: 20121221
